FAERS Safety Report 6828586-8 (Version None)
Quarter: 2010Q3

REPORT INFORMATION
  Report Type: 
  Country: None (occurrence: None)
  Receive Date: 20100709
  Receipt Date: 20070209
  Transmission Date: 20110219
  Serious: No
  Sender: FDA-Public Use
  Company Number: US-PFIZER INC-2007012900

PATIENT
  Sex: Female
  Weight: 60.33 kg

DRUGS (10)
  1. CHANTIX [Suspect]
     Indication: SMOKING CESSATION THERAPY
     Dates: start: 20070131
  2. EFFEXOR [Concomitant]
     Indication: DEPRESSION
  3. CLONAZEPAM [Concomitant]
     Indication: DEPRESSION
  4. SEROQUEL [Concomitant]
     Indication: DEPRESSION
  5. REMERON [Concomitant]
     Indication: DEPRESSION
  6. VITAMINS [Concomitant]
  7. EFFEXOR [Concomitant]
  8. CLONAZEPAM [Concomitant]
  9. SEROQUEL [Concomitant]
  10. REMERON [Concomitant]

REACTIONS (4)
  - CONSTIPATION [None]
  - HEADACHE [None]
  - NAUSEA [None]
  - VOMITING [None]
